FAERS Safety Report 18249615 (Version 1)
Quarter: 2020Q3

REPORT INFORMATION
  Report Type: Spontaneous
  Country: JP (occurrence: JP)
  Receive Date: 20200909
  Receipt Date: 20200909
  Transmission Date: 20201103
  Serious: Yes (Hospitalization, Other)
  Sender: FDA-Public Use
  Company Number: JP-BRISTOL-MYERS SQUIBB COMPANY-BMS-2019-117900

PATIENT
  Age: 67 Year
  Sex: Male
  Weight: 66.3 kg

DRUGS (9)
  1. OPDIVO [Suspect]
     Active Substance: NIVOLUMAB
     Dosage: 240 MILLIGRAM
     Route: 041
     Dates: start: 20181109, end: 20200403
  2. KAKKONTO [CINNAMOMUM CASSIA BARK;EPHEDRA SPP. HERB;GLYCYRRHIZA SPP. RO [Concomitant]
     Active Substance: HERBALS
     Indication: PROPHYLAXIS
     Dosage: 2.5 GRAM, Q8H
     Route: 048
     Dates: start: 20170915, end: 20171130
  3. OPDIVO [Suspect]
     Active Substance: NIVOLUMAB
     Dosage: 3 MILLIGRAM/KILOGRAM
     Route: 041
     Dates: start: 20180202, end: 20181026
  4. EPINASTINE [EPINASTINE HYDROCHLORIDE] [Concomitant]
     Indication: PROPHYLAXIS
     Dosage: 20 MG, EVERYDAY
     Route: 048
     Dates: start: 20151202
  5. LYRICA [Concomitant]
     Active Substance: PREGABALIN
     Indication: PRODUCT USED FOR UNKNOWN INDICATION
     Dosage: 150 MILLIGRAM, Q12H
     Route: 048
     Dates: start: 20151204
  6. EURODIN [ESTAZOLAM] [Concomitant]
     Indication: PROPHYLAXIS
     Dosage: 2 MG, EVERYDAY
     Route: 048
  7. BIOFERMIN [BIFIDOBACTERIUM BIFIDUM] [Concomitant]
     Indication: PROPHYLAXIS
     Dosage: 1 GRAM, Q8H
     Route: 048
     Dates: start: 20170203
  8. OPDIVO [Suspect]
     Active Substance: NIVOLUMAB
     Indication: NON-SMALL CELL LUNG CANCER RECURRENT
     Dosage: 3 MILLIGRAM/KILOGRAM
     Route: 041
     Dates: start: 20170119, end: 20171124
  9. PARIET [Concomitant]
     Active Substance: RABEPRAZOLE SODIUM
     Indication: PROPHYLAXIS
     Dosage: 10 MG, EVERYDAY
     Route: 048

REACTIONS (4)
  - Type 1 diabetes mellitus [Not Recovered/Not Resolved]
  - Hyperkalaemia [Unknown]
  - Headache [Unknown]
  - Hypoglycaemia [Unknown]

NARRATIVE: CASE EVENT DATE: 20171208
